FAERS Safety Report 25316804 (Version 1)
Quarter: 2025Q2

REPORT INFORMATION
  Report Type: Spontaneous
  Country: US (occurrence: US)
  Receive Date: 20250515
  Receipt Date: 20250515
  Transmission Date: 20250716
  Serious: Yes (Life-Threatening, Hospitalization)
  Sender: DR REDDYS
  Company Number: None

PATIENT
  Age: 80 Year
  Sex: Male

DRUGS (3)
  1. DOXORUBICIN [Suspect]
     Active Substance: DOXORUBICIN
     Indication: Kaposi^s sarcoma
     Dosage: CYCLICAL, PEGYLATED LIPOSOMAL??08-FEB-2022
     Dates: end: 2023
  2. DOXORUBICIN [Suspect]
     Active Substance: DOXORUBICIN
     Indication: Kaposi^s sarcoma
  3. DOXORUBICIN [Suspect]
     Active Substance: DOXORUBICIN
     Indication: Human herpesvirus 8 infection

REACTIONS (3)
  - Acute kidney injury [Recovering/Resolving]
  - Renal-limited thrombotic microangiopathy [Recovering/Resolving]
  - Glomerulosclerosis [Recovering/Resolving]

NARRATIVE: CASE EVENT DATE: 20220101
